FAERS Safety Report 5073627-4 (Version None)
Quarter: 2006Q3

REPORT INFORMATION
  Report Type: 
  Country: None (occurrence: None)
  Receive Date: 20060801
  Receipt Date: 20060721
  Transmission Date: 20061208
  Serious: Yes (Hospitalization)
  Sender: FDA-Public Use
  Company Number: 200610221BBE

PATIENT

DRUGS (2)
  1. GAMUNEX [Suspect]
  2. GAMUNEX [Suspect]

REACTIONS (3)
  - BLOOD BILIRUBIN INCREASED [None]
  - LIVER FUNCTION TEST ABNORMAL [None]
  - MENINGITIS ASEPTIC [None]
